FAERS Safety Report 4883028-7 (Version None)
Quarter: 2005Q4

REPORT INFORMATION
  Report Type: 
  Country: None (occurrence: None)
  Receive Date: 20051201
  Receipt Date: 20050907
  Transmission Date: 20060501
  Serious: No
  Sender: FDA-Public Use
  Company Number: 2005PV001769

PATIENT
  Age: 72 Year
  Sex: Female
  Weight: 109.3169 kg

DRUGS (12)
  1. BYETTA [Suspect]
     Indication: DIABETES MELLITUS NON-INSULIN-DEPENDENT
     Dosage: 10 MCG; BID; SC
     Route: 058
     Dates: start: 20050731
  2. GLUCOVANCE [Concomitant]
  3. TARKA [Concomitant]
  4. AVAPRO [Concomitant]
  5. HYDROCHLOROTHIAZIDE [Concomitant]
  6. LASIX [Concomitant]
  7. POTASSIUM [Concomitant]
  8. LIPITOR [Concomitant]
  9. ASCORBIC ACID [Concomitant]
  10. VITAMIN E [Concomitant]
  11. FOSAMAX [Concomitant]
  12. CALCIUM GLUCONATE [Concomitant]

REACTIONS (3)
  - DECREASED APPETITE [None]
  - INJECTION SITE BRUISING [None]
  - WEIGHT DECREASED [None]
